FAERS Safety Report 24911095 (Version 2)
Quarter: 2025Q3

REPORT INFORMATION
  Report Type: Spontaneous
  Country: IL (occurrence: IL)
  Receive Date: 20250131
  Receipt Date: 20250802
  Transmission Date: 20251020
  Serious: Yes (Other)
  Sender: ALEXION PHARMACEUTICALS
  Company Number: IL-AstraZeneca-CH-00795674A

PATIENT
  Sex: Female

DRUGS (2)
  1. FASLODEX [Suspect]
     Active Substance: FULVESTRANT
     Route: 065
  2. FASLODEX [Suspect]
     Active Substance: FULVESTRANT

REACTIONS (6)
  - Tumour marker increased [Unknown]
  - Product use issue [Unknown]
  - Stress [Unknown]
  - Product substitution issue [Unknown]
  - Therapeutic response changed [Unknown]
  - Product availability issue [Unknown]
